FAERS Safety Report 19404804 (Version 2)
Quarter: 2022Q1

REPORT INFORMATION
  Report Type: Spontaneous
  Country: US (occurrence: US)
  Receive Date: 20210611
  Receipt Date: 20220307
  Transmission Date: 20220423
  Serious: No
  Sender: FDA-Public Use
  Company Number: US-PFIZER INC-2018527500

PATIENT
  Age: 63 Year
  Sex: Female

DRUGS (3)
  1. LYRICA [Suspect]
     Active Substance: PREGABALIN
     Indication: Musculoskeletal pain
     Dosage: 100 MG, 2X/DAY (TWICE A DAY)
     Route: 048
  2. LYRICA [Suspect]
     Active Substance: PREGABALIN
     Indication: Diabetic neuropathy
     Dosage: 150 MG, 2X/DAY (TWICE A DAY)
     Route: 048
  3. LYRICA [Suspect]
     Active Substance: PREGABALIN
     Indication: Pain
     Dosage: 150 MG, AS NEEDED (SIG: TAKE 1 CAPSULE BY ORAL ROUTE 2 TIMES EVERY DAY AS NEEDED FOR PAIN)
     Route: 048

REACTIONS (1)
  - Disturbance in attention [Unknown]
